FAERS Safety Report 24391171 (Version 1)
Quarter: 2024Q4

REPORT INFORMATION
  Report Type: Spontaneous
  Country: AU (occurrence: AU)
  Receive Date: 20241003
  Receipt Date: 20241003
  Transmission Date: 20250114
  Serious: Yes (Hospitalization)
  Sender: BRISTOL MYERS SQUIBB
  Company Number: AU-BRISTOL-MYERS SQUIBB COMPANY-2024-155146

PATIENT
  Age: 76 Year
  Sex: Female

DRUGS (2)
  1. APIXABAN [Suspect]
     Active Substance: APIXABAN
     Indication: Atrial fibrillation
     Dates: start: 20240208, end: 202404
  2. APIXABAN [Suspect]
     Active Substance: APIXABAN
     Dosage: 5 MG AT MORNING AND 2.5 MG AT NIGHT
     Dates: start: 20240412, end: 20240505

REACTIONS (5)
  - Illness [Unknown]
  - Muscular weakness [Unknown]
  - Tremor [Unknown]
  - Gait inability [Unknown]
  - Treatment noncompliance [Unknown]

NARRATIVE: CASE EVENT DATE: 20240101
